FAERS Safety Report 7901997-5 (Version None)
Quarter: 2011Q4

REPORT INFORMATION
  Report Type: 
  Country: None (occurrence: None)
  Receive Date: 20111108
  Receipt Date: 20111102
  Transmission Date: 20120403
  Serious: Yes (Life-Threatening, Hospitalization, Other)
  Sender: FDA-Public Use
  Company Number: US-GLAXOSMITHKLINE-A0936361A

PATIENT
  Age: 41 Year
  Sex: Female
  Weight: 90.7 kg

DRUGS (10)
  1. OXYCODONE HCL [Concomitant]
     Route: 048
  2. FLOLAN [Suspect]
     Indication: COR PULMONALE CHRONIC
     Route: 042
     Dates: start: 20101213
  3. TRACLEER [Concomitant]
     Route: 048
  4. LASIX [Concomitant]
     Route: 048
  5. DIGOXIN [Concomitant]
     Route: 048
  6. FLOLAN [Suspect]
     Indication: COR PULMONALE CHRONIC
     Dosage: 18.5NGKM UNKNOWN
     Route: 042
     Dates: start: 20101213
  7. MAGNESIUM [Concomitant]
     Route: 048
  8. COMPAZINE [Concomitant]
     Route: 048
  9. WARFARIN SODIUM [Concomitant]
     Route: 048
  10. REVATIO [Concomitant]
     Dosage: 20MG UNKNOWN
     Route: 048

REACTIONS (6)
  - PYREXIA [None]
  - SEPTIC SHOCK [None]
  - BLOOD CULTURE POSITIVE [None]
  - STAPHYLOCOCCAL INFECTION [None]
  - CHILLS [None]
  - ENDOCARDITIS [None]
